FAERS Safety Report 13100965 (Version 20)
Quarter: 2018Q4

REPORT INFORMATION
  Report Type: Report from Study
  Country: US (occurrence: US)
  Receive Date: 20170110
  Receipt Date: 20181224
  Transmission Date: 20190204
  Serious: Yes (Hospitalization, Other)
  Sender: FDA-Public Use
  Company Number: US-ROCHE-1871130

PATIENT
  Age: 69 Year
  Sex: Male
  Weight: 79.3 kg

DRUGS (33)
  1. VEMURAFENIB. [Suspect]
     Active Substance: VEMURAFENIB
     Indication: METASTATIC MALIGNANT MELANOMA
     Dosage: COMBO THERAPY?MOST RECENT DOSE PRIOR TO EVENT (BILATERAL CENTRAL SEROUS RETINOPATHY): 19/DEC/2016
     Route: 048
     Dates: start: 20160804, end: 20161220
  2. HEPARIN [Concomitant]
     Active Substance: HEPARIN SODIUM
     Dosage: 5000 UNITS/ML
     Route: 058
  3. LOPERAMIDE [Concomitant]
     Active Substance: LOPERAMIDE
     Indication: DIARRHOEA
     Route: 048
     Dates: start: 20161219
  4. CRESTOR [Concomitant]
     Active Substance: ROSUVASTATIN CALCIUM
     Indication: BLOOD CHOLESTEROL INCREASED
     Route: 048
     Dates: start: 20170614
  5. ANDROGEL [Concomitant]
     Active Substance: TESTOSTERONE
     Dosage: 1 OTHER
     Route: 061
     Dates: start: 20181003
  6. VEMURAFENIB. [Suspect]
     Active Substance: VEMURAFENIB
     Indication: METASTATIC MALIGNANT MELANOMA
     Dosage: RUN IN
     Route: 048
     Dates: start: 20160707
  7. COBIMETINIB. [Suspect]
     Active Substance: COBIMETINIB
     Indication: METASTATIC MALIGNANT MELANOMA
     Dosage: COMBO THERAPY ?MOST RECENT DOSE PRIOR TO EVENT (BILATERAL CENTRAL SEROUS RETINOPATHY):18/DEC/2016
     Route: 048
     Dates: start: 20160804, end: 20161219
  8. NAFTIN [Concomitant]
     Active Substance: NAFTIFINE HYDROCHLORIDE
     Indication: ONYCHOMYCOSIS
     Route: 061
  9. WHITE PETROLATUM [Concomitant]
     Active Substance: PETROLATUM
     Route: 061
  10. HYDROCORTISONE. [Concomitant]
     Active Substance: HYDROCORTISONE
     Route: 048
     Dates: start: 20161229
  11. CLINDAMYCIN. [Concomitant]
     Active Substance: CLINDAMYCIN
     Route: 061
     Dates: start: 20170420, end: 20181002
  12. ZYRTEC [Concomitant]
     Active Substance: CETIRIZINE HYDROCHLORIDE
     Indication: SEASONAL ALLERGY
     Route: 048
  13. MELATONIN [Concomitant]
     Active Substance: MELATONIN
     Indication: RESTLESSNESS
     Route: 048
     Dates: start: 20170309
  14. ASPIRIN. [Concomitant]
     Active Substance: ASPIRIN
     Route: 048
  15. TYLENOL [Concomitant]
     Active Substance: ACETAMINOPHEN
     Route: 048
  16. SENOKOT-S [Concomitant]
     Active Substance: DOCUSATE SODIUM\SENNOSIDES
     Dosage: 8.6MG/50MG
     Route: 048
  17. HYDROCORTISONE. [Concomitant]
     Active Substance: HYDROCORTISONE
     Route: 048
     Dates: start: 20170209
  18. SYNTHROID [Concomitant]
     Active Substance: LEVOTHYROXINE SODIUM
     Route: 048
     Dates: start: 20161229
  19. BACITRACIN EYE OINTMENT [Concomitant]
     Indication: BLEPHARITIS
     Dosage: 500 UNITS?1 APPLICATION
     Route: 047
  20. TRAMADOL. [Concomitant]
     Active Substance: TRAMADOL
     Route: 048
  21. LINEZOLID. [Concomitant]
     Active Substance: LINEZOLID
     Indication: ASPIRATION
     Dosage: 600MG/300ML
     Route: 042
     Dates: start: 20161221, end: 20161223
  22. AUGMENTIN [Concomitant]
     Active Substance: AMOXICILLIN\CLAVULANATE POTASSIUM
     Indication: LUNG INFECTION
     Route: 048
     Dates: start: 20161223, end: 20170103
  23. IBUPROFEN. [Concomitant]
     Active Substance: IBUPROFEN
     Indication: MUSCULOSKELETAL PAIN
     Route: 048
     Dates: start: 20170503, end: 20170503
  24. ATEZOLIZUMAB. [Suspect]
     Active Substance: ATEZOLIZUMAB
     Indication: METASTATIC MALIGNANT MELANOMA
     Dosage: THE DATE OF THE MOST RECENT DOSE OF ATEZOLIZUMAB 1200 MG PRIOR TO EVENT (CENTRAL SEROUS RETINOPATHY,
     Route: 042
     Dates: start: 20160804
  25. KLOR-CON [Concomitant]
     Active Substance: POTASSIUM CHLORIDE
     Indication: HYPOKALAEMIA
     Dosage: 20 OTHER
     Route: 048
     Dates: start: 20160728
  26. CEFEPIME [Concomitant]
     Active Substance: CEFEPIME HYDROCHLORIDE
     Route: 042
  27. HYDROCORTISONE. [Concomitant]
     Active Substance: HYDROCORTISONE
     Route: 048
     Dates: start: 20161229, end: 20170209
  28. ZOSYN [Concomitant]
     Active Substance: PIPERACILLIN SODIUM\TAZOBACTAM SODIUM
     Indication: ASPIRATION
     Route: 042
     Dates: start: 20161220, end: 20161220
  29. COBIMETINIB. [Suspect]
     Active Substance: COBIMETINIB
     Indication: METASTATIC MALIGNANT MELANOMA
     Dosage: RUN-IN
     Route: 048
     Dates: start: 20160707
  30. FLONASE [Concomitant]
     Active Substance: FLUTICASONE PROPIONATE
     Indication: NASAL CONGESTION
     Route: 055
  31. ONDANSETRON [Concomitant]
     Active Substance: ONDANSETRON
     Route: 042
  32. LACTOBACILLUS ACIDOPHILUS/LACTOBACILLUS BULGARICUS [Concomitant]
     Indication: DIARRHOEA
     Dosage: DOSE: 4 (UNIT NOT REPORTED)
     Route: 048
     Dates: start: 20161219, end: 20180905
  33. PRAVASTATIN. [Concomitant]
     Active Substance: PRAVASTATIN
     Indication: BLOOD CHOLESTEROL INCREASED
     Route: 048
     Dates: start: 20170522, end: 20170614

REACTIONS (6)
  - Macular oedema [Recovered/Resolved]
  - Chorioretinopathy [Recovered/Resolved]
  - Squamous cell carcinoma [Recovered/Resolved]
  - Pyrexia [Recovered/Resolved]
  - Hypophysitis [Not Recovered/Not Resolved]
  - Acute kidney injury [Recovering/Resolving]

NARRATIVE: CASE EVENT DATE: 20161216
